FAERS Safety Report 22193584 (Version 1)
Quarter: 2023Q2

REPORT INFORMATION
  Report Type: Spontaneous
  Country: CN (occurrence: CN)
  Receive Date: 20230410
  Receipt Date: 20230410
  Transmission Date: 20230722
  Serious: Yes (Hospitalization)
  Sender: FDA-Public Use
  Company Number: CN-ELI_LILLY_AND_COMPANY-CN202304000597

PATIENT
  Age: 46 Year
  Sex: Female

DRUGS (5)
  1. ABEMACICLIB [Suspect]
     Active Substance: ABEMACICLIB
     Indication: Breast cancer
     Dosage: 150 MG, BID
     Route: 048
     Dates: start: 20220620
  2. PERJETA [Suspect]
     Active Substance: PERTUZUMAB
     Indication: Breast cancer
     Dosage: 840 MG, OTHER (1 TIME 21 DAYS )
     Route: 042
     Dates: start: 20220620
  3. ZOLADEX [Suspect]
     Active Substance: GOSERELIN ACETATE
     Indication: Radiation castration
     Dosage: 3.6 MG, OTHER (1 TIME 28 DAYS)
     Route: 058
     Dates: start: 20220620
  4. HERCEPTIN [Suspect]
     Active Substance: TRASTUZUMAB
     Indication: Breast cancer
     Dosage: 440 MG, OTHER (1 TIME 21 DAYS)
     Route: 042
     Dates: start: 20220620
  5. ANASTROZOLE [Suspect]
     Active Substance: ANASTROZOLE
     Indication: Endocrine disorder
     Dosage: 1 MG, DAILY
     Route: 048
     Dates: start: 20220620

REACTIONS (1)
  - Psoriasis [Unknown]

NARRATIVE: CASE EVENT DATE: 20230328
